FAERS Safety Report 26130336 (Version 1)
Quarter: 2025Q4

REPORT INFORMATION
  Report Type: Spontaneous
  Country: US (occurrence: US)
  Receive Date: 20251208
  Receipt Date: 20251208
  Transmission Date: 20260118
  Serious: Yes (Hospitalization)
  Sender: MYLAN
  Company Number: US-MYLANLABS-2025M1103276

PATIENT
  Age: 65 Year
  Sex: Male

DRUGS (8)
  1. VALPROIC ACID [Interacting]
     Active Substance: VALPROIC ACID
     Indication: Mood swings
     Dosage: 500 MILLIGRAM, QD
  2. VALPROIC ACID [Interacting]
     Active Substance: VALPROIC ACID
     Dosage: 500 MILLIGRAM, QD
     Route: 065
  3. VALPROIC ACID [Interacting]
     Active Substance: VALPROIC ACID
     Dosage: 500 MILLIGRAM, QD
     Route: 065
  4. VALPROIC ACID [Interacting]
     Active Substance: VALPROIC ACID
     Dosage: 500 MILLIGRAM, QD
  5. WARFARIN [Interacting]
     Active Substance: WARFARIN
     Indication: Anticoagulant therapy
     Dosage: UNK
  6. WARFARIN [Interacting]
     Active Substance: WARFARIN
     Dosage: UNK
     Route: 065
  7. WARFARIN [Interacting]
     Active Substance: WARFARIN
     Dosage: UNK
     Route: 065
  8. WARFARIN [Interacting]
     Active Substance: WARFARIN
     Dosage: UNK

REACTIONS (3)
  - Labelled drug-drug interaction medication error [Recovered/Resolved]
  - International normalised ratio increased [Recovered/Resolved]
  - Drug level increased [Recovered/Resolved]
